FAERS Safety Report 9832086 (Version 1)
Quarter: 2014Q1

REPORT INFORMATION
  Report Type: Spontaneous
  Country: MX (occurrence: MX)
  Receive Date: 20140121
  Receipt Date: 20140121
  Transmission Date: 20141002
  Serious: Yes (Other)
  Sender: FDA-Public Use
  Company Number: PHHY2014MX006687

PATIENT
  Age: 67 Year
  Sex: Female

DRUGS (2)
  1. DIOVAN [Suspect]
     Dosage: 320 MG, DAILY
     Route: 048
     Dates: end: 20140108
  2. TAFIL [Concomitant]
     Indication: RELAXATION THERAPY
     Dosage: 1 UKN, DAILY
     Dates: start: 2010

REACTIONS (2)
  - Poisoning [Recovered/Resolved]
  - Drug hypersensitivity [Recovered/Resolved]
